FAERS Safety Report 4419456-3 (Version None)
Quarter: 2004Q3

REPORT INFORMATION
  Report Type: 
  Country: None (occurrence: None)
  Receive Date: 20040804
  Receipt Date: 20040722
  Transmission Date: 20050211
  Serious: Yes (Hospitalization, Other)
  Sender: FDA-Public Use
  Company Number: 2004024432

PATIENT
  Age: 41 Year
  Sex: Male
  Weight: 98 kg

DRUGS (10)
  1. LIPITOR [Suspect]
     Indication: HYPERCHOLESTEROLAEMIA
     Dosage: 5 MG (1 IN 1 D), ORAL
     Route: 048
     Dates: start: 20030118, end: 20040404
  2. ALL OTHER THERAPEUTIC PRODUCTS [Concomitant]
  3. ANTIHYPERTENSIVES [Concomitant]
  4. AMLODIPINE BESYLATE [Concomitant]
  5. TRICHLORMETHIAZIDE [Concomitant]
  6. LANSOPRAZOLE [Concomitant]
  7. FUROSEMIDE [Concomitant]
  8. DOXAZOSIN MESYLATE [Concomitant]
  9. METFORMIN HCL [Concomitant]
  10. MOSAPRIDE CITRATE [Concomitant]

REACTIONS (6)
  - DIABETIC NEPHROPATHY [None]
  - DISEASE PROGRESSION [None]
  - HAEMODIALYSIS [None]
  - HYPOAESTHESIA [None]
  - REFLUX OESOPHAGITIS [None]
  - RHABDOMYOLYSIS [None]
